FAERS Safety Report 26170226 (Version 1)
Quarter: 2025Q4

REPORT INFORMATION
  Report Type: Report from Study
  Country: CA (occurrence: CA)
  Receive Date: 20251217
  Receipt Date: 20251217
  Transmission Date: 20260117
  Serious: Yes (Other)
  Sender: ABBVIE
  Company Number: CA-ABBVIE-6591648

PATIENT
  Sex: Female

DRUGS (1)
  1. SKYRIZI [Suspect]
     Active Substance: RISANKIZUMAB-RZAA
     Indication: Crohn^s disease
     Dosage: LDD: 28 OCT 2025
     Route: 058

REACTIONS (3)
  - Squamous cell carcinoma [Unknown]
  - Precancerous condition [Unknown]
  - Hyperkeratosis [Unknown]
